FAERS Safety Report 5648759-X (Version None)
Quarter: 2008Q1

REPORT INFORMATION
  Report Type: 
  Country: None (occurrence: None)
  Receive Date: 20080229
  Receipt Date: 20080214
  Transmission Date: 20080703
  Serious: Yes (Hospitalization)
  Sender: FDA-Public Use
  Company Number: 8028132

PATIENT
  Sex: Female

DRUGS (4)
  1. KEPPRA [Suspect]
     Dosage: 1000 MG 2/D
  2. CARBAMAZEPINE [Concomitant]
  3. LUMINALETTEN [Concomitant]
  4. NEXIUM [Concomitant]

REACTIONS (4)
  - COLITIS [None]
  - GASTRIC ULCER [None]
  - GASTRITIS EROSIVE [None]
  - RECTAL HAEMORRHAGE [None]
